FAERS Safety Report 7014274-4 (Version None)
Quarter: 2010Q3

REPORT INFORMATION
  Report Type: 
  Country: None (occurrence: None)
  Receive Date: 20100924
  Receipt Date: 20100924
  Transmission Date: 20110219
  Serious: No
  Sender: FDA-Public Use
  Company Number: None

PATIENT
  Age: 86 Year
  Sex: Female
  Weight: 78.9259 kg

DRUGS (1)
  1. TRIAMTERENE AND HYDROCHLOROTHIAZIDE [Suspect]
     Indication: HYPERTENSION
     Dosage: 37.5/25 ONE QD PO
     Route: 048
     Dates: start: 20100522, end: 20100617

REACTIONS (6)
  - CELLULITIS [None]
  - ERYTHEMA [None]
  - PRODUCT SUBSTITUTION ISSUE [None]
  - PRURITUS [None]
  - RASH [None]
  - SWELLING [None]
